FAERS Safety Report 21920681 (Version 1)
Quarter: 2023Q1

REPORT INFORMATION
  Report Type: Spontaneous
  Country: CN (occurrence: CN)
  Receive Date: 20230127
  Receipt Date: 20230127
  Transmission Date: 20230418
  Serious: Yes (Other)
  Sender: FDA-Public Use
  Company Number: CN-009507513-2301CHN007476

PATIENT
  Age: 45 Year
  Sex: Male

DRUGS (3)
  1. IMIPENEM AND CILASTATIN [Suspect]
     Active Substance: CILASTATIN SODIUM\IMIPENEM
     Indication: Klebsiella infection
     Dosage: UNK
     Dates: start: 201911, end: 20191122
  2. MOXIFLOXACIN [Concomitant]
     Active Substance: MOXIFLOXACIN
     Indication: Klebsiella infection
     Dosage: UNK
     Dates: start: 2019, end: 201911
  3. AVIBACTAM SODIUM\CEFTAZIDIME [Concomitant]
     Active Substance: AVIBACTAM SODIUM\CEFTAZIDIME
     Indication: Klebsiella infection
     Dosage: FOR 3 DAYS
     Dates: start: 201911, end: 201911

REACTIONS (1)
  - Pathogen resistance [Recovered/Resolved]

NARRATIVE: CASE EVENT DATE: 20191122
